FAERS Safety Report 23983518 (Version 1)
Quarter: 2024Q2

REPORT INFORMATION
  Report Type: Report from Study
  Country: ZA (occurrence: ZA)
  Receive Date: 20240617
  Receipt Date: 20240617
  Transmission Date: 20240716
  Serious: Yes (Other)
  Sender: FDA-Public Use
  Company Number: ZA-AstraZeneca-2024-222689

PATIENT
  Sex: Female

DRUGS (1)
  1. SYNAGIS [Suspect]
     Active Substance: PALIVIZUMAB
     Indication: Antiviral prophylaxis
     Dosage: EVERY FOUR WEEKS
     Route: 030
     Dates: start: 20240512

REACTIONS (2)
  - Oxygen saturation decreased [Unknown]
  - Dysphagia [Unknown]
